FAERS Safety Report 13362709 (Version 1)
Quarter: 2017Q1

REPORT INFORMATION
  Report Type: Spontaneous
  Country: US (occurrence: US)
  Receive Date: 20170322
  Receipt Date: 20170322
  Transmission Date: 20170429
  Serious: No
  Sender: FDA-Public Use
  Company Number: None

PATIENT
  Age: 56 Year
  Sex: Female

DRUGS (1)
  1. RIBAVIRIN TAB 200MG [Suspect]
     Active Substance: RIBAVIRIN
     Indication: HEPATITIS C

REACTIONS (6)
  - Headache [None]
  - Influenza like illness [None]
  - Pain [None]
  - Fatigue [None]
  - Drug dose omission [None]
  - Extra dose administered [None]

NARRATIVE: CASE EVENT DATE: 20170301
